FAERS Safety Report 8219391-9 (Version None)
Quarter: 2012Q1

REPORT INFORMATION
  Report Type: 
  Country: None (occurrence: None)
  Receive Date: 20120319
  Receipt Date: 20120315
  Transmission Date: 20120608
  Serious: Yes (Other)
  Sender: FDA-Public Use
  Company Number: GB-PFIZER INC-2012068239

PATIENT
  Age: 42 Year
  Sex: Female

DRUGS (3)
  1. RAMIPRIL [Concomitant]
     Indication: HYPERTENSION
     Dosage: 10 MG, 1X/DAY
     Route: 048
     Dates: start: 20100514
  2. VARENICLINE TARTRATE [Suspect]
     Indication: SMOKING CESSATION THERAPY
     Dosage: 1 DF, 2X/DAY
     Route: 048
     Dates: start: 20120121, end: 20120221
  3. AMOXICILLIN [Concomitant]
     Indication: TOOTH INFECTION
     Dosage: 500 MG, 3X/DAY
     Route: 048
     Dates: start: 20120131, end: 20120207

REACTIONS (4)
  - TEARFULNESS [None]
  - AGGRESSION [None]
  - IRRITABILITY [None]
  - DEPRESSION [None]
